FAERS Safety Report 7818569-3 (Version None)
Quarter: 2011Q4

REPORT INFORMATION
  Report Type: 
  Country: None (occurrence: None)
  Receive Date: 20111017
  Receipt Date: 20111007
  Transmission Date: 20120403
  Serious: Yes (Hospitalization)
  Sender: FDA-Public Use
  Company Number: PE-ASTRAZENECA-2011SE60449

PATIENT
  Age: 93 Year
  Sex: Male

DRUGS (2)
  1. ISOFORBIDE [Concomitant]
  2. CRESTOR [Suspect]
     Indication: ARTERIAL INSUFFICIENCY
     Route: 048
     Dates: start: 20110914

REACTIONS (1)
  - THROMBOSIS [None]
